FAERS Safety Report 13755557 (Version 2)
Quarter: 2017Q3

REPORT INFORMATION
  Report Type: Spontaneous
  Country: KR (occurrence: KR)
  Receive Date: 20170714
  Receipt Date: 20170804
  Transmission Date: 20171127
  Serious: No
  Sender: FDA-Public Use
  Company Number: KR-009507513-1702KOR010914

PATIENT
  Age: 55 Year
  Sex: Male
  Weight: 60.1 kg

DRUGS (18)
  1. EMEND (FOSAPREPITANT DIMEGLUMINE) [Suspect]
     Active Substance: FOSAPREPITANT DIMEGLUMINE
     Indication: PROPHYLAXIS OF NAUSEA AND VOMITING
     Dosage: 150 MG, ONCE
     Route: 042
     Dates: start: 20161214, end: 20161214
  2. DENOGAN [Concomitant]
     Active Substance: PROPACETAMOL HYDROCHLORIDE
     Indication: HYPERTHERMIA
     Dosage: 1 G, ONCE
     Route: 042
     Dates: start: 20161209, end: 20161209
  3. EMEND (FOSAPREPITANT DIMEGLUMINE) [Suspect]
     Active Substance: FOSAPREPITANT DIMEGLUMINE
     Dosage: UNK
  4. GEMZAR [Concomitant]
     Active Substance: GEMCITABINE HYDROCHLORIDE
     Indication: NON-SMALL CELL LUNG CANCER
     Dosage: 1610 MG, ONCE, CYCLE: 1
     Route: 042
     Dates: start: 20161214, end: 20161214
  5. DEXAMETHASONE SODIUM PHOSPHATE. [Concomitant]
     Active Substance: DEXAMETHASONE SODIUM PHOSPHATE
     Dosage: 10 MG, ONCE (STRENGTH: 5MG/ML)
     Route: 042
     Dates: start: 20161221, end: 20161221
  6. ABSTRAL [Concomitant]
     Active Substance: FENTANYL CITRATE
     Dosage: 400 MICROGRAM, ONCE
     Route: 060
     Dates: start: 20161210, end: 20161210
  7. CURAN [Concomitant]
     Active Substance: RANITIDINE HYDROCHLORIDE
     Indication: PROPHYLAXIS
     Dosage: 50 MG, ONCE (STRENGTH: 50MG/2ML)
     Route: 042
     Dates: start: 20161214, end: 20161214
  8. CISPLATIN. [Concomitant]
     Active Substance: CISPLATIN
     Indication: NON-SMALL CELL LUNG CANCER
     Dosage: 112 MG, ONCE (STRENGTH: 50MG/100ML)
     Route: 042
     Dates: start: 20161214, end: 20161214
  9. DEXAMETHASONE SODIUM PHOSPHATE. [Concomitant]
     Active Substance: DEXAMETHASONE SODIUM PHOSPHATE
     Indication: PROPHYLAXIS OF NAUSEA AND VOMITING
     Dosage: 20 MG, ONCE (STRENGTH: 5MG/ML)
     Route: 042
     Dates: start: 20161214, end: 20161214
  10. ABSTRAL [Concomitant]
     Active Substance: FENTANYL CITRATE
     Indication: CANCER PAIN
     Dosage: 100 MICROGRAM, BID
     Route: 060
     Dates: start: 20161209, end: 20161209
  11. LASIX [Concomitant]
     Active Substance: FUROSEMIDE
     Indication: PROPHYLAXIS
     Dosage: 20 MG, ONCE (STRENGTH: 20MG/2ML)
     Route: 042
     Dates: start: 20161214, end: 20161214
  12. GEMZAR [Concomitant]
     Active Substance: GEMCITABINE HYDROCHLORIDE
     Dosage: 1610 MG, ONCE, CYCLE: 1
     Route: 042
     Dates: start: 20161221, end: 20161221
  13. TAZOPERAN [Concomitant]
     Indication: PNEUMONIA
     Dosage: 4.5 G, QID
     Route: 042
     Dates: start: 20161207, end: 20161215
  14. MUTERAN [Concomitant]
     Active Substance: ACETYLCYSTEINE
     Dosage: 600 MG, TID
     Route: 042
     Dates: start: 20161210, end: 20161215
  15. SANCUSO [Concomitant]
     Active Substance: GRANISETRON
     Indication: PROPHYLAXIS OF NAUSEA AND VOMITING
     Dosage: 1 ^EA^, QD (STRENGTH: 80.2X66.6 MM2)
     Route: 062
     Dates: start: 20161213, end: 20161219
  16. ABSTRAL [Concomitant]
     Active Substance: FENTANYL CITRATE
     Dosage: 100 MICROGRAM, ONCE
     Route: 060
     Dates: start: 20161214, end: 20161214
  17. MUTERAN [Concomitant]
     Active Substance: ACETYLCYSTEINE
     Indication: PRODUCTIVE COUGH
     Dosage: 600 MG, BID
     Route: 042
     Dates: start: 20161207, end: 20161209
  18. DONG A GASTER [Concomitant]
     Indication: DYSPEPSIA
     Dosage: 20 MG, ONCE
     Route: 042
     Dates: start: 20161208, end: 20161208

REACTIONS (3)
  - Dyspepsia [Recovered/Resolved]
  - Decreased appetite [Recovered/Resolved]
  - Hiccups [Recovered/Resolved]

NARRATIVE: CASE EVENT DATE: 20161215
